FAERS Safety Report 18821414 (Version 1)
Quarter: 2021Q1

REPORT INFORMATION
  Report Type: Spontaneous
  Country: US (occurrence: US)
  Receive Date: 20210202
  Receipt Date: 20210202
  Transmission Date: 20210419
  Serious: Yes (Hospitalization)
  Sender: FDA-Public Use
  Company Number: None

PATIENT
  Age: 64 Year
  Sex: Female
  Weight: 111 kg

DRUGS (2)
  1. BAMLANIVIMAB. [Concomitant]
     Active Substance: BAMLANIVIMAB
     Dates: start: 20210130, end: 20210130
  2. BAMLANIVIMAB 700MG IN SODIUM CHLORIDE 0.9% [Suspect]
     Active Substance: BAMLANIVIMAB
     Indication: SARS-COV-2 TEST POSITIVE
     Route: 041
     Dates: start: 20210130, end: 20210130

REACTIONS (6)
  - Diarrhoea [None]
  - Pain [None]
  - Pyrexia [None]
  - Fatigue [None]
  - Headache [None]
  - Cough [None]

NARRATIVE: CASE EVENT DATE: 20210130
